FAERS Safety Report 18717636 (Version 1)
Quarter: 2021Q1

REPORT INFORMATION
  Report Type: Spontaneous
  Country: US (occurrence: US)
  Receive Date: 20210108
  Receipt Date: 20210108
  Transmission Date: 20210419
  Serious: Yes (Hospitalization)
  Sender: FDA-Public Use
  Company Number: US-AMNEAL PHARMACEUTICALS-2020-AMRX-04151

PATIENT
  Age: 61 Year
  Sex: Female

DRUGS (8)
  1. METFORMIN HYDROCHLORIDE ER [Suspect]
     Active Substance: METFORMIN HYDROCHLORIDE
     Indication: GLUCOSE TOLERANCE IMPAIRED
     Dosage: 500 MILLIGRAM, DAILY
     Route: 065
  2. ALPELISIB [Suspect]
     Active Substance: ALPELISIB
     Indication: METASTASES TO BONE
     Dosage: 250 MILLIGRAM, DAILY
     Route: 065
  3. METFORMIN HYDROCHLORIDE ER [Suspect]
     Active Substance: METFORMIN HYDROCHLORIDE
     Dosage: 1000 MILLIGRAM, 2X/DAY
     Route: 065
  4. FULVESTRANT. [Concomitant]
     Active Substance: FULVESTRANT
     Indication: METASTASES TO BONE
  5. ALPELISIB [Suspect]
     Active Substance: ALPELISIB
     Indication: BREAST CANCER METASTATIC
     Dosage: 300 MILLIGRAM, DAILY
     Route: 065
  6. ALPELISIB [Suspect]
     Active Substance: ALPELISIB
     Indication: METASTASES TO LUNG
  7. FULVESTRANT. [Concomitant]
     Active Substance: FULVESTRANT
     Indication: METASTASES TO LUNG
  8. FULVESTRANT. [Concomitant]
     Active Substance: FULVESTRANT
     Indication: BREAST CANCER METASTATIC
     Dosage: UNK
     Route: 065

REACTIONS (2)
  - Acute kidney injury [Recovered/Resolved]
  - Hyperglycaemia [Recovered/Resolved]
